FAERS Safety Report 21009134 (Version 1)
Quarter: 2022Q2

REPORT INFORMATION
  Report Type: Spontaneous
  Country: US (occurrence: None)
  Receive Date: 20220627
  Receipt Date: 20220627
  Transmission Date: 20220721
  Serious: No
  Sender: FDA-Public Use
  Company Number: 2022A226387

PATIENT
  Age: 76 Year
  Sex: Female
  Weight: 80.6 kg

DRUGS (1)
  1. DURVALUMAB [Suspect]
     Active Substance: DURVALUMAB
     Indication: Lung neoplasm malignant
     Route: 042

REACTIONS (2)
  - Back pain [Recovered/Resolved]
  - Hypertension [Recovered/Resolved]
